FAERS Safety Report 18124451 (Version 1)
Quarter: 2020Q3

REPORT INFORMATION
  Report Type: Spontaneous
  Country: US (occurrence: US)
  Receive Date: 20200807
  Receipt Date: 20200807
  Transmission Date: 20201103
  Serious: No
  Sender: FDA-Public Use
  Company Number: US-PFIZER INC-2020294656

PATIENT
  Age: 86 Year
  Sex: Female

DRUGS (6)
  1. AROMASIN [Suspect]
     Active Substance: EXEMESTANE
     Indication: BONE CANCER
  2. AROMASIN [Suspect]
     Active Substance: EXEMESTANE
     Indication: BREAST CANCER FEMALE
  3. AROMASIN [Suspect]
     Active Substance: EXEMESTANE
     Indication: CHEMOTHERAPY
  4. AROMASIN [Suspect]
     Active Substance: EXEMESTANE
     Indication: HEAD AND NECK CANCER
  5. AROMASIN [Suspect]
     Active Substance: EXEMESTANE
     Indication: METASTASES TO SKIN
     Dosage: 25 MG
  6. AROMASIN [Suspect]
     Active Substance: EXEMESTANE
     Indication: TUMOUR MARKER ABNORMAL

REACTIONS (2)
  - Oropharyngeal discomfort [Unknown]
  - Confusional state [Unknown]

NARRATIVE: CASE EVENT DATE: 202008
